FAERS Safety Report 10050302 (Version 1)
Quarter: 2014Q1

REPORT INFORMATION
  Report Type: Spontaneous
  Country: US (occurrence: None)
  Receive Date: 20140331
  Receipt Date: 20140331
  Transmission Date: 20141002
  Serious: Yes (Hospitalization, Disabling)
  Sender: FDA-Public Use
  Company Number: None

PATIENT
  Age: 22 Year
  Sex: Male
  Weight: 81.65 kg

DRUGS (1)
  1. ZYPREXA 40MG ELI LILLY + CO. [Suspect]
     Dosage: 2 PILLS  TWICE DAILY  TAKEN BY MOUTH
     Route: 048
     Dates: start: 20120726, end: 20121015

REACTIONS (8)
  - Fall [None]
  - Fatigue [None]
  - Anorgasmia [None]
  - Muscular weakness [None]
  - Atrophy [None]
  - Metabolic syndrome [None]
  - Presyncope [None]
  - Mental disorder [None]
